FAERS Safety Report 21300422 (Version 5)
Quarter: 2022Q4

REPORT INFORMATION
  Report Type: Spontaneous
  Country: PL (occurrence: PL)
  Receive Date: 20220907
  Receipt Date: 20221027
  Transmission Date: 20230112
  Serious: Yes (Hospitalization)
  Sender: FDA-Public Use
  Company Number: PL-BIOGEN-2022BI01153121

PATIENT
  Age: 51 Year
  Sex: Male

DRUGS (3)
  1. TYSABRI [Suspect]
     Active Substance: NATALIZUMAB
     Indication: Product used for unknown indication
     Route: 050
     Dates: start: 2002
  2. TYSABRI [Suspect]
     Active Substance: NATALIZUMAB
     Route: 050
     Dates: start: 200206
  3. TYSABRI [Suspect]
     Active Substance: NATALIZUMAB
     Route: 050
     Dates: start: 201402

REACTIONS (9)
  - Facial paralysis [Unknown]
  - Areflexia [Unknown]
  - Extensor plantar response [Unknown]
  - Gait disturbance [Unknown]
  - Neurogenic bladder [Unknown]
  - Prescribed underdose [Unknown]
  - Demyelination [Unknown]
  - Multiple sclerosis relapse [Unknown]
  - COVID-19 [Unknown]
